FAERS Safety Report 5960113-X (Version None)
Quarter: 2008Q4

REPORT INFORMATION
  Report Type: 
  Country: None (occurrence: None)
  Receive Date: 20081118
  Receipt Date: 20081118
  Transmission Date: 20090506
  Serious: Yes (Other)
  Sender: FDA-Public Use
  Company Number: None

PATIENT
  Age: 19 Year
  Sex: Female
  Weight: 66.2252 kg

DRUGS (1)
  1. MIRENA [Suspect]
     Indication: CONTRACEPTION
     Dosage: ONE IUD INTRACERVICAL
     Route: 019
     Dates: start: 20081110, end: 20081117

REACTIONS (15)
  - ACNE [None]
  - CRYING [None]
  - DEPRESSION [None]
  - FATIGUE [None]
  - HAEMORRHAGE [None]
  - HIRSUTISM [None]
  - HOSTILITY [None]
  - IRRITABILITY [None]
  - LOSS OF LIBIDO [None]
  - MALAISE [None]
  - MUSCLE SPASMS [None]
  - NAUSEA [None]
  - SKIN ULCER [None]
  - SUICIDAL IDEATION [None]
  - WEIGHT INCREASED [None]
